FAERS Safety Report 10034416 (Version 1)
Quarter: 2014Q1

REPORT INFORMATION
  Report Type: Spontaneous
  Country: US (occurrence: None)
  Receive Date: 20140324
  Receipt Date: 20140324
  Transmission Date: 20141002
  Serious: Yes (Disabling)
  Sender: FDA-Public Use
  Company Number: None

PATIENT
  Age: 62 Year
  Sex: Female
  Weight: 99.79 kg

DRUGS (2)
  1. ATORVASTATIN [Suspect]
     Indication: PROPHYLAXIS
     Dosage: 1 PILL ONCE DAILY TAKEN BY MOUTH
     Route: 048
     Dates: start: 20131108, end: 20140228
  2. ATORVASTATIN [Suspect]
     Indication: DEVICE OCCLUSION
     Dosage: 1 PILL ONCE DAILY TAKEN BY MOUTH
     Route: 048
     Dates: start: 20131108, end: 20140228

REACTIONS (9)
  - Myalgia [None]
  - Arthralgia [None]
  - Urinary incontinence [None]
  - Dysuria [None]
  - Vision blurred [None]
  - Feeling abnormal [None]
  - Asthenia [None]
  - Fear [None]
  - Constipation [None]
